FAERS Safety Report 7383749-0 (Version None)
Quarter: 2011Q1

REPORT INFORMATION
  Report Type: 
  Country: None (occurrence: None)
  Receive Date: 20110330
  Receipt Date: 20110323
  Transmission Date: 20110831
  Serious: Yes (Death)
  Sender: FDA-Public Use
  Company Number: JP-ROCHE-767574

PATIENT
  Age: 76 Year
  Sex: Female

DRUGS (2)
  1. XELODA [Suspect]
     Indication: RECTAL CANCER
     Route: 048
     Dates: start: 20110224, end: 20110226
  2. ELPLAT [Concomitant]
     Dosage: STOP DATE: FEB 2011.
     Route: 041
     Dates: start: 20110224

REACTIONS (2)
  - ILEUS [None]
  - SEPTIC SHOCK [None]
